FAERS Safety Report 6211918-1 (Version None)
Quarter: 2009Q2

REPORT INFORMATION
  Report Type: 
  Country: None (occurrence: None)
  Receive Date: 20090529
  Receipt Date: 20090519
  Transmission Date: 20091009
  Serious: Yes (Other)
  Sender: FDA-Public Use
  Company Number: 234371K09USA

PATIENT
  Age: 35 Year
  Sex: Female

DRUGS (3)
  1. REBIF [Suspect]
     Indication: MULTIPLE SCLEROSIS
     Dosage: 44 MCG, 3 IN 1 WEEKS, SUBCUTANEOUS
     Route: 058
     Dates: start: 20081019, end: 20090501
  2. TYLENOL (COTYLENOL) [Concomitant]
  3. ADVIL [Concomitant]

REACTIONS (3)
  - BREAST CYST [None]
  - BREAST MASS [None]
  - OPEN WOUND [None]
